FAERS Safety Report 6314774-6 (Version None)
Quarter: 2009Q3

REPORT INFORMATION
  Report Type: 
  Country: None (occurrence: None)
  Receive Date: 20090819
  Receipt Date: 20090811
  Transmission Date: 20100115
  Serious: Yes (Hospitalization)
  Sender: FDA-Public Use
  Company Number: FR-CELGENEUS-056-C5013-09080730

PATIENT
  Sex: Female
  Weight: 34.5 kg

DRUGS (7)
  1. CC-5013 [Suspect]
     Indication: MULTIPLE MYELOMA
     Route: 048
     Dates: start: 20090730
  2. CC-5013 [Suspect]
     Route: 048
     Dates: start: 20090701
  3. DEXAMETHASONE [Suspect]
     Indication: MULTIPLE MYELOMA
     Route: 048
     Dates: start: 20090730
  4. DEXAMETHASONE [Suspect]
     Route: 048
     Dates: start: 20090701
  5. DURAGESIC-100 [Concomitant]
     Indication: BONE PAIN
     Route: 065
     Dates: start: 20090730
  6. ASPEGIC 1000 [Concomitant]
     Indication: THROMBOSIS PROPHYLAXIS
     Dosage: SACHET
     Route: 048
     Dates: start: 20090701
  7. NEXIUM [Concomitant]
     Indication: PROPHYLAXIS
     Route: 048
     Dates: start: 20090701

REACTIONS (1)
  - GENERAL PHYSICAL HEALTH DETERIORATION [None]
